FAERS Safety Report 6441639-1 (Version None)
Quarter: 2009Q4

REPORT INFORMATION
  Report Type: 
  Country: None (occurrence: None)
  Receive Date: 20091116
  Receipt Date: 20090420
  Transmission Date: 20100525
  Serious: Yes (Death, Other)
  Sender: FDA-Public Use
  Company Number: US-ASTRAZENECA-2009UW07549

PATIENT
  Age: 76 Year
  Sex: Male

DRUGS (6)
  1. CRESTOR [Suspect]
     Indication: CORONARY ARTERY DISEASE
     Route: 048
  2. HUMALOG [Concomitant]
     Indication: DIABETES MELLITUS
     Dosage: 20 UNITS
     Route: 058
  3. GLYBURIDE [Concomitant]
     Indication: DIABETES MELLITUS
     Route: 048
  4. CARVEDILOL [Concomitant]
     Indication: DIABETES MELLITUS
     Route: 048
  5. FLOMAX [Concomitant]
     Indication: PROSTATE CANCER
  6. ACTOS [Concomitant]
     Indication: DIABETES MELLITUS
     Route: 048

REACTIONS (5)
  - BRAIN INJURY [None]
  - DIABETIC COMPLICATION [None]
  - DYSPNOEA [None]
  - POOR PERIPHERAL CIRCULATION [None]
  - SKIN ULCER [None]
